FAERS Safety Report 18208039 (Version 3)
Quarter: 2022Q2

REPORT INFORMATION
  Report Type: Other
  Country: US (occurrence: None)
  Receive Date: 20200828
  Receipt Date: 20220421
  Transmission Date: 20220720
  Serious: Yes (Hospitalization, Disabling)
  Sender: FDA-Public Use
  Company Number: US-ROCHE-2648494

PATIENT
  Age: 81 Year
  Sex: Female
  Weight: 78.542 kg

DRUGS (10)
  1. LUCENTIS [Suspect]
     Active Substance: RANIBIZUMAB
     Indication: Neovascular age-related macular degeneration
     Dosage: THERAPY STATUS ONGOING:YES
     Route: 050
     Dates: start: 20160819
  2. LUCENTIS [Suspect]
     Active Substance: RANIBIZUMAB
     Indication: Choroidal neovascularisation
  3. AVASTIN [Suspect]
     Active Substance: BEVACIZUMAB
     Indication: Neovascular age-related macular degeneration
     Route: 050
     Dates: start: 20160413, end: 20160819
  4. AVASTIN [Suspect]
     Active Substance: BEVACIZUMAB
     Indication: Choroidal neovascularisation
  5. WARFARIN [Concomitant]
     Active Substance: WARFARIN
     Indication: Anticoagulant therapy
     Route: 048
  6. AMLODIPINE [Concomitant]
     Active Substance: AMLODIPINE BESYLATE
     Indication: Blood pressure measurement
     Dates: start: 2020
  7. LOSARTAN [Concomitant]
     Active Substance: LOSARTAN
     Indication: Blood pressure measurement
  8. LOVASTATIN [Concomitant]
     Active Substance: LOVASTATIN
     Indication: Blood cholesterol
  9. GABAPENTIN [Concomitant]
     Active Substance: GABAPENTIN
     Indication: Sciatica
     Dates: start: 20200701, end: 20200720
  10. COUMADIN [Concomitant]
     Active Substance: WARFARIN SODIUM

REACTIONS (6)
  - Abdominal pain [Recovered/Resolved]
  - Haemorrhage [Recovered/Resolved]
  - Off label use [Unknown]
  - Drug hypersensitivity [Unknown]
  - Haemorrhage [Recovered/Resolved]
  - Blindness unilateral [Unknown]

NARRATIVE: CASE EVENT DATE: 20160801
